FAERS Safety Report 10061978 (Version 2)
Quarter: 2014Q2

REPORT INFORMATION
  Report Type: Spontaneous
  Country: DE (occurrence: DE)
  Receive Date: 20140407
  Receipt Date: 20140407
  Transmission Date: 20141212
  Serious: Yes (Hospitalization)
  Sender: FDA-Public Use
  Company Number: DE-009507513-1403DEU006328

PATIENT
  Age: 47 Year
  Sex: Female
  Weight: 74 kg

DRUGS (6)
  1. VELMETIA [Suspect]
     Indication: TYPE 2 DIABETES MELLITUS
     Dosage: 1-0-1
     Route: 048
  2. TAMOXIFEN CITRATE [Interacting]
     Indication: BREAST CANCER FEMALE
     Dosage: 20 MG, 1-0-0
     Route: 065
     Dates: start: 2012
  3. LANTUS [Suspect]
     Indication: TYPE 2 DIABETES MELLITUS
     Dosage: TOTAL DAILY DOSE 12 IU, PRANDIAL (TOTAL DAILY DOSE 12 IU)
     Dates: start: 20140311
  4. LANTUS [Suspect]
     Dosage: DAILY DOSE OVERALL MORE THAN 50 IU
     Dates: start: 201403
  5. MAGNESIUM VERLA (MAGNESIUM ASPARTATE (+) MAGNESIUM CITRATE (+) MAGNESI [Concomitant]
     Dosage: 1-0-0
  6. IRON (UNSPECIFIED) [Concomitant]
     Dosage: 1-0-1
     Route: 048

REACTIONS (2)
  - Drug interaction [Unknown]
  - Drug ineffective [Unknown]
